FAERS Safety Report 7132990-0 (Version None)
Quarter: 2010Q4

REPORT INFORMATION
  Report Type: 
  Country: None (occurrence: None)
  Receive Date: 20101202
  Receipt Date: 20101125
  Transmission Date: 20110411
  Serious: Yes (Hospitalization)
  Sender: FDA-Public Use
  Company Number: JP-MERCK-1011USA03767

PATIENT
  Age: 63 Year
  Sex: Female

DRUGS (24)
  1. SINGULAIR [Suspect]
     Indication: ASTHMA
     Route: 048
     Dates: start: 20101110, end: 20101112
  2. CRESTOR [Suspect]
     Indication: HYPERLIPIDAEMIA
     Route: 048
  3. LIPITOR [Suspect]
     Indication: HYPERLIPIDAEMIA
     Route: 048
  4. AMLODIPINE BESYLATE [Concomitant]
     Indication: HYPERTENSION
     Route: 048
  5. MAGLAX [Concomitant]
     Route: 048
  6. EXCEGRAN [Concomitant]
     Route: 048
  7. DEPAKENE [Concomitant]
     Route: 048
  8. MENESIT [Concomitant]
     Route: 048
  9. RINDERON VG [Concomitant]
     Dosage: SPREADING SEVERAL TIMES A DAY
     Route: 061
  10. INSIDE (INDOMETHACIN) [Concomitant]
     Dosage: STICK ONCE A DAY
     Route: 061
  11. ALOSENN [Concomitant]
     Dosage: BEFORE BEDTIME
     Route: 048
  12. SENNOSIDES [Concomitant]
     Dosage: BEFORE BEDTIME
     Route: 048
  13. GRAMALIL [Concomitant]
     Route: 048
  14. CELECOXIB [Concomitant]
     Route: 048
  15. ALLERMIST [Concomitant]
     Route: 065
  16. PA TABLETS [Concomitant]
     Route: 048
  17. BUFFERIN [Concomitant]
     Route: 048
  18. AMOBAN [Concomitant]
     Route: 048
  19. ARDEPHYLLIN [Concomitant]
     Route: 048
  20. MAGNESIUM OXIDE [Concomitant]
     Route: 048
  21. FLUITRAN [Concomitant]
     Route: 048
  22. PEPCID RPD [Concomitant]
     Route: 048
  23. COSPANON [Concomitant]
     Route: 048
  24. DOXAZOSIN MESYLATE [Concomitant]
     Route: 048

REACTIONS (1)
  - LIVER DISORDER [None]
